FAERS Safety Report 6304613-1 (Version None)
Quarter: 2009Q3

REPORT INFORMATION
  Report Type: 
  Country: None (occurrence: None)
  Receive Date: 20090811
  Receipt Date: 20090806
  Transmission Date: 20100115
  Serious: Yes (Other)
  Sender: FDA-Public Use
  Company Number: US-JNJFOC-20090802533

PATIENT
  Sex: Female
  Weight: 77.11 kg

DRUGS (3)
  1. FENTANYL TRANSDERMAL SYSTEM [Suspect]
     Indication: BACK PAIN
     Route: 062
  2. LEXAPRO [Concomitant]
     Indication: ANXIETY
     Dosage: ONCE NIGHTLY
     Route: 048
  3. AMBIEN [Concomitant]
     Indication: INSOMNIA
     Dosage: ONCE IN NIGHT
     Route: 048

REACTIONS (2)
  - NAUSEA [None]
  - OSTEOPOROSIS [None]
